FAERS Safety Report 8996330 (Version 2)
Quarter: 2013Q1

REPORT INFORMATION
  Report Type: Spontaneous
  Country: IN (occurrence: IN)
  Receive Date: 20130104
  Receipt Date: 20130204
  Transmission Date: 20140127
  Serious: Yes (Hospitalization)
  Sender: FDA-Public Use
  Company Number: IN-MERCK-1301IND000512

PATIENT
  Age: 40 Year
  Sex: Male

DRUGS (2)
  1. VIRAFERONPEG [Suspect]
     Dosage: 50 MICROGRAM, QW
     Dates: end: 20121231
  2. REBETOL [Suspect]
     Dosage: UNK
     Dates: end: 20121231

REACTIONS (1)
  - Ascites [Unknown]
